FAERS Safety Report 4274704-8 (Version None)
Quarter: 2004Q1

REPORT INFORMATION
  Report Type: 
  Country: None (occurrence: None)
  Receive Date: 20040120
  Receipt Date: 20040120
  Transmission Date: 20041129
  Serious: Yes (Hospitalization)
  Sender: FDA-Public Use
  Company Number: None

PATIENT
  Age: 50 Year
  Sex: Male
  Weight: 84.8226 kg

DRUGS (4)
  1. VELCADE [Suspect]
     Indication: METASTATIC MALIGNANT MELANOMA
     Dosage: IV 2 X/WK FOR 2 WKS THEN Q 3WKS
     Route: 042
     Dates: start: 20031125, end: 20031229
  2. TEMODAR [Suspect]
     Indication: METASTASES TO ADRENALS
     Dosage: ONE DAILY STARTING DAY 8 X 6 WKS
     Dates: start: 20031202, end: 20040105
  3. TEMODAR [Suspect]
     Indication: METASTASES TO LIVER
     Dosage: ONE DAILY STARTING DAY 8 X 6 WKS
     Dates: start: 20031202, end: 20040105
  4. TEMODAR [Suspect]
     Indication: METASTASES TO LUNG
     Dosage: ONE DAILY STARTING DAY 8 X 6 WKS
     Dates: start: 20031202, end: 20040105

REACTIONS (8)
  - ABDOMINAL DISTENSION [None]
  - ADRENAL DISORDER [None]
  - ARTERIAL HAEMORRHAGE [None]
  - DYSPNOEA [None]
  - NAUSEA [None]
  - PLEURAL EFFUSION [None]
  - PULMONARY EMBOLISM [None]
  - VOMITING [None]
